FAERS Safety Report 18241398 (Version 1)
Quarter: 2020Q3

REPORT INFORMATION
  Report Type: Spontaneous
  Country: US (occurrence: US)
  Receive Date: 20200908
  Receipt Date: 20200908
  Transmission Date: 20201103
  Serious: No
  Sender: FDA-Public Use
  Company Number: US-BAYER-2020-186077

PATIENT
  Age: 81 Year
  Sex: Male

DRUGS (8)
  1. ATORVASTATIN [Concomitant]
     Active Substance: ATORVASTATIN
  2. CALCIUM [Concomitant]
     Active Substance: CALCIUM
  3. ASCORBIC ACID. [Concomitant]
     Active Substance: ASCORBIC ACID
  4. MELATONIN [Concomitant]
     Active Substance: MELATONIN
  5. BAYER LOW DOSE [Suspect]
     Active Substance: ASPIRIN
     Indication: ANTICOAGULANT THERAPY
     Route: 048
  6. DULCOLAX STOOL SOFTENER [Concomitant]
     Active Substance: DOCUSATE SODIUM
  7. MIRALAX [Suspect]
     Active Substance: POLYETHYLENE GLYCOL 3350
     Indication: GASTROINTESTINAL DISORDER
     Dosage: 0.5 DF, QD
     Route: 048
     Dates: start: 20200831, end: 20200901
  8. SYMBICORT [Concomitant]
     Active Substance: BUDESONIDE\FORMOTEROL FUMARATE DIHYDRATE

REACTIONS (2)
  - Product use in unapproved indication [None]
  - Incorrect dose administered [Unknown]

NARRATIVE: CASE EVENT DATE: 20200831
